FAERS Safety Report 7400151-3 (Version None)
Quarter: 2011Q2

REPORT INFORMATION
  Report Type: 
  Country: None (occurrence: None)
  Receive Date: 20110407
  Receipt Date: 20110331
  Transmission Date: 20111010
  Serious: Yes (Hospitalization)
  Sender: FDA-Public Use
  Company Number: TW-ASTRAZENECA-2011SE17911

PATIENT
  Age: 70 Year
  Sex: Female

DRUGS (10)
  1. CRESTOR [Suspect]
     Route: 048
     Dates: start: 20101209, end: 20110314
  2. CO DIOVAN [Concomitant]
  3. SEMI NAX [Concomitant]
  4. TOFRANIL [Concomitant]
  5. DIABETROL [Concomitant]
  6. NPH INSULIN [Concomitant]
  7. DEFENSE [Concomitant]
  8. METFORMIN [Concomitant]
  9. JANUVIA [Concomitant]
  10. THROUGH [Concomitant]

REACTIONS (3)
  - HEPATITIS ACUTE [None]
  - FATIGUE [None]
  - HEPATIC ENZYME ABNORMAL [None]
